FAERS Safety Report 7052000-3 (Version None)
Quarter: 2010Q4

REPORT INFORMATION
  Report Type: 
  Country: None (occurrence: None)
  Receive Date: 20101019
  Receipt Date: 20101011
  Transmission Date: 20110411
  Serious: Yes (Hospitalization)
  Sender: FDA-Public Use
  Company Number: B0669117A

PATIENT
  Age: 49 Year
  Sex: Male

DRUGS (1)
  1. HYCAMTIN [Suspect]
     Dosage: 1MGM2 PER DAY
     Route: 042
     Dates: start: 20100607, end: 20100611

REACTIONS (8)
  - ANAEMIA [None]
  - BLISTER [None]
  - DERMATITIS BULLOUS [None]
  - LEUKOPENIA [None]
  - PANCYTOPENIA [None]
  - SKIN EXFOLIATION [None]
  - THROMBOCYTOPENIA [None]
  - TOXIC SKIN ERUPTION [None]
